FAERS Safety Report 9160296 (Version 1)
Quarter: 2013Q1

REPORT INFORMATION
  Report Type: Spontaneous
  Country: US (occurrence: None)
  Receive Date: 20130220
  Receipt Date: 20130220
  Transmission Date: 20140127
  Serious: Yes (Hospitalization)
  Sender: FDA-Public Use
  Company Number: 13-02-015

PATIENT
  Age: 36 Year
  Sex: Female
  Weight: 77.11 kg

DRUGS (1)
  1. METHIMAZOLE TABLETS, 10 MG [Suspect]
     Indication: HYPERTHYROIDISM
     Dosage: THREE TABLETS PER DAY.
     Route: 048

REACTIONS (4)
  - Rash pruritic [None]
  - Swelling [None]
  - Urticaria [None]
  - Throat tightness [None]
